FAERS Safety Report 7148059-5 (Version None)
Quarter: 2010Q4

REPORT INFORMATION
  Report Type: 
  Country: None (occurrence: None)
  Receive Date: 20101209
  Receipt Date: 20101126
  Transmission Date: 20110411
  Serious: No
  Sender: FDA-Public Use
  Company Number: AU-ELI_LILLY_AND_COMPANY-AU201009001974

PATIENT
  Age: 35 Year
  Sex: Female

DRUGS (2)
  1. CYMBALTA [Suspect]
     Indication: DEPRESSION
     Dosage: 120 MG, DAILY (1/D)
     Route: 065
     Dates: end: 20100917
  2. LITHIUM CARBONATE [Concomitant]

REACTIONS (3)
  - HEPATIC STEATOSIS [None]
  - HEPATOMEGALY [None]
  - NAUSEA [None]
